FAERS Safety Report 11104614 (Version 1)
Quarter: 2015Q2

REPORT INFORMATION
  Report Type: Spontaneous
  Country: US (occurrence: US)
  Receive Date: 20150511
  Receipt Date: 20150511
  Transmission Date: 20150821
  Serious: Yes (Death, Other)
  Sender: FDA-Public Use
  Company Number: US-ASTRAZENECA-2014SE60030

PATIENT
  Age: 839 Month
  Sex: Male
  Weight: 82.6 kg

DRUGS (11)
  1. MAGNESIUM OXIDE. [Concomitant]
     Active Substance: MAGNESIUM OXIDE
     Route: 048
  2. BYETTA [Suspect]
     Active Substance: EXENATIDE
     Dosage: UNK
     Route: 065
     Dates: start: 200509
  3. ASPIRIN. [Concomitant]
     Active Substance: ASPIRIN
  4. VICODIN [Concomitant]
     Active Substance: ACETAMINOPHEN\HYDROCODONE BITARTRATE
     Dosage: 5-500 MG TABLETS
     Route: 048
  5. BYETTA [Suspect]
     Active Substance: EXENATIDE
     Route: 065
     Dates: start: 20041103
  6. LANTUS [Concomitant]
     Active Substance: INSULIN GLARGINE
  7. LYRICA [Concomitant]
     Active Substance: PREGABALIN
     Route: 048
  8. NOVOLOG [Concomitant]
     Active Substance: INSULIN ASPART
  9. PLAVIX [Concomitant]
     Active Substance: CLOPIDOGREL BISULFATE
     Route: 048
  10. JANUMET [Suspect]
     Active Substance: METFORMIN HYDROCHLORIDE\SITAGLIPTIN PHOSPHATE
     Dosage: UNK
     Route: 065
     Dates: start: 2008
  11. BYETTA [Suspect]
     Active Substance: EXENATIDE
     Route: 065
     Dates: start: 20050928

REACTIONS (2)
  - Hepatic cancer [Unknown]
  - Adenocarcinoma pancreas [Fatal]

NARRATIVE: CASE EVENT DATE: 201003
